FAERS Safety Report 6072462-8 (Version None)
Quarter: 2009Q1

REPORT INFORMATION
  Report Type: 
  Country: None (occurrence: None)
  Receive Date: 20090210
  Receipt Date: 20090204
  Transmission Date: 20090719
  Serious: No
  Sender: FDA-Public Use
  Company Number: US-BAYER-200912572NA

PATIENT
  Age: 12 Year
  Sex: Female

DRUGS (5)
  1. BETASERON [Suspect]
     Indication: MULTIPLE SCLEROSIS
     Dosage: AS USED: 8 MIU
     Route: 058
     Dates: start: 20070501
  2. BETASERON [Suspect]
     Route: 058
     Dates: start: 20060101, end: 20060701
  3. CELLCEPT [Concomitant]
     Dosage: TOTAL DAILY DOSE: 1000 MG
  4. TYLENOL [Concomitant]
  5. CENTRUM MULTIVITAMIN [Concomitant]

REACTIONS (2)
  - MULTIPLE SCLEROSIS RELAPSE [None]
  - VISUAL ACUITY REDUCED [None]
